FAERS Safety Report 25473746 (Version 2)
Quarter: 2025Q3

REPORT INFORMATION
  Report Type: Spontaneous
  Country: US (occurrence: US)
  Receive Date: 20250624
  Receipt Date: 20250709
  Transmission Date: 20251021
  Serious: No
  Sender: Haleon PLC
  Company Number: US-HALEON-2248605

PATIENT
  Sex: Female

DRUGS (1)
  1. FLONASE ALLERGY RELIEF [Suspect]
     Active Substance: FLUTICASONE PROPIONATE
     Indication: Analgesic therapy
     Dates: start: 20250613, end: 20250620

REACTIONS (2)
  - Nasal discomfort [Recovered/Resolved]
  - Product physical consistency issue [Unknown]
